FAERS Safety Report 5203912-4 (Version None)
Quarter: 2007Q1

REPORT INFORMATION
  Report Type: 
  Country: None (occurrence: None)
  Receive Date: 20070109
  Receipt Date: 20070109
  Transmission Date: 20070707
  Serious: Yes (Other)
  Sender: FDA-Public Use
  Company Number: None

PATIENT
  Age: 20 Year
  Sex: Female
  Weight: 77.1115 kg

DRUGS (1)
  1. MINOCYCLINE HCL [Suspect]
     Indication: ACNE
     Dosage: 1 CAPSULE TWICE DAILY ORALLY
     Route: 048
     Dates: start: 20061013, end: 20061122

REACTIONS (6)
  - BRAIN OEDEMA [None]
  - DIPLOPIA [None]
  - MIGRAINE [None]
  - NERVE COMPRESSION [None]
  - OPTIC NERVE DISORDER [None]
  - VOMITING [None]
